FAERS Safety Report 5551868-7 (Version None)
Quarter: 2007Q4

REPORT INFORMATION
  Report Type: 
  Country: None (occurrence: None)
  Receive Date: 20071212
  Receipt Date: 20071130
  Transmission Date: 20080405
  Serious: Yes (Hospitalization)
  Sender: FDA-Public Use
  Company Number: DE-PFIZER INC-2007101269

PATIENT
  Sex: Male
  Weight: 82 kg

DRUGS (11)
  1. SU-011,248 [Suspect]
     Indication: METASTATIC RENAL CELL CARCINOMA
     Dosage: DAILY DOSE:50MG
     Route: 048
  2. PANTOPRAZOLE SODIUM [Concomitant]
  3. MUSARIL [Concomitant]
  4. ANDROCUR [Concomitant]
     Dates: start: 20060601, end: 20070807
  5. LACTULOSE [Concomitant]
     Route: 048
  6. KH3 POWELL [Concomitant]
  7. MESTINON [Concomitant]
     Dates: start: 20070201, end: 20071112
  8. EUTHYROX [Concomitant]
  9. ACETAMINOPHEN [Concomitant]
  10. FERROUS SULFATE TAB [Concomitant]
  11. CYPROTERONE [Concomitant]

REACTIONS (3)
  - INFECTION [None]
  - OESOPHAGITIS [None]
  - SYNCOPE [None]
